FAERS Safety Report 4592261-3 (Version None)
Quarter: 2005Q1

REPORT INFORMATION
  Report Type: 
  Country: None (occurrence: None)
  Receive Date: 20050228
  Receipt Date: 20041104
  Transmission Date: 20050727
  Serious: No
  Sender: FDA-Public Use
  Company Number: US-BRISTOL-MYERS SQUIBB COMPANY-12760450

PATIENT

DRUGS (4)
  1. ABILIFY [Suspect]
     Indication: DEPRESSION
     Route: 048
  2. EFFEXOR [Concomitant]
  3. NORTRIPTYLINE HCL [Concomitant]
  4. TOPAMAX [Concomitant]

REACTIONS (1)
  - DYSKINESIA [None]
